FAERS Safety Report 7394307-6 (Version None)
Quarter: 2011Q2

REPORT INFORMATION
  Report Type: 
  Country: None (occurrence: None)
  Receive Date: 20110405
  Receipt Date: 20110324
  Transmission Date: 20111010
  Serious: Yes (Hospitalization)
  Sender: FDA-Public Use
  Company Number: JP-ROCHE-668511

PATIENT
  Sex: Male
  Weight: 59 kg

DRUGS (28)
  1. ACTEMRA [Suspect]
     Route: 041
     Dates: start: 20081227, end: 20081227
  2. ACTEMRA [Suspect]
     Route: 041
     Dates: start: 20090422, end: 20090422
  3. ACTEMRA [Suspect]
     Route: 041
     Dates: start: 20090124, end: 20090124
  4. ACTEMRA [Suspect]
     Route: 041
     Dates: start: 20090813, end: 20090813
  5. PREDNISOLONE [Concomitant]
     Route: 048
     Dates: start: 20081218, end: 20090912
  6. LORFENAMIN [Concomitant]
     Route: 048
     Dates: end: 20090912
  7. ACTEMRA [Suspect]
     Route: 041
     Dates: start: 20080909, end: 20080909
  8. ACTEMRA [Suspect]
     Route: 041
     Dates: start: 20081009, end: 20081009
  9. ACTEMRA [Suspect]
     Route: 041
     Dates: start: 20081106, end: 20081106
  10. ACTEMRA [Suspect]
     Route: 041
     Dates: start: 20081204, end: 20081204
  11. PREDNISOLONE [Concomitant]
     Dosage: FORM: PERORAL AGENT.
     Route: 048
     Dates: end: 20081217
  12. TIEKAPTO [Concomitant]
     Route: 048
  13. CIMETIDINE [Concomitant]
     Dosage: DRUG REPORTED: CIMETIPARL
     Route: 048
     Dates: end: 20090912
  14. ACTEMRA [Suspect]
     Indication: RHEUMATOID ARTHRITIS
     Route: 041
     Dates: start: 20080812, end: 20080812
  15. ACTEMRA [Suspect]
     Route: 041
     Dates: start: 20090225, end: 20090225
  16. ACTEMRA [Suspect]
     Route: 041
     Dates: start: 20090619, end: 20090619
  17. ACTEMRA [Suspect]
     Route: 041
     Dates: start: 20090716, end: 20090716
  18. ISONIAZID [Concomitant]
     Dosage: FORM: PERORAL AGENT.
     Route: 048
     Dates: start: 20080702, end: 20090912
  19. NEUER [Concomitant]
     Route: 048
     Dates: end: 20090912
  20. ACTEMRA [Suspect]
     Route: 041
     Dates: start: 20090910, end: 20090910
  21. ACTEMRA [Suspect]
     Route: 041
     Dates: start: 20090521, end: 20090521
  22. TIEKAPTO [Concomitant]
     Route: 048
     Dates: end: 20090912
  23. BREDININ [Concomitant]
     Route: 048
     Dates: end: 20090912
  24. LORFENAMIN [Concomitant]
     Route: 048
  25. FERO-GRADUMET [Concomitant]
     Route: 048
     Dates: end: 20090912
  26. ACTEMRA [Suspect]
     Route: 041
     Dates: start: 20090326, end: 20090326
  27. SHAKUYAKU-KANZO-TO [Concomitant]
     Dosage: FORM: PERORAL AGENT.
     Route: 048
     Dates: end: 20090912
  28. BENET [Concomitant]
     Route: 048
     Dates: end: 20090912

REACTIONS (1)
  - CEREBRAL HAEMORRHAGE [None]
